FAERS Safety Report 8032437-6 (Version None)
Quarter: 2012Q1

REPORT INFORMATION
  Report Type: 
  Country: None (occurrence: None)
  Receive Date: 20120110
  Receipt Date: 20120104
  Transmission Date: 20120608
  Serious: Yes (Hospitalization)
  Sender: FDA-Public Use
  Company Number: NL-JNJFOC-20120101588

PATIENT
  Sex: Male
  Weight: 76 kg

DRUGS (12)
  1. DOXORUBICIN HCL [Suspect]
     Indication: DIFFUSE LARGE B-CELL LYMPHOMA
     Route: 042
     Dates: start: 20100924
  2. RITUXIMAB [Suspect]
     Indication: DIFFUSE LARGE B-CELL LYMPHOMA
     Route: 042
     Dates: start: 20100924
  3. PREDNISONE TAB [Suspect]
     Indication: DIFFUSE LARGE B-CELL LYMPHOMA
     Route: 048
     Dates: start: 20101206
  4. PREDNISONE TAB [Suspect]
     Route: 048
     Dates: start: 20100924
  5. VINBLASTINE SULFATE [Suspect]
     Indication: DIFFUSE LARGE B-CELL LYMPHOMA
     Route: 042
     Dates: start: 20101202
  6. DOXORUBICIN HCL [Suspect]
     Route: 042
     Dates: start: 20101202
  7. NEUPOGEN [Suspect]
     Route: 058
     Dates: start: 20101202
  8. CYCLOPHOSPHAMIDE [Suspect]
     Indication: DIFFUSE LARGE B-CELL LYMPHOMA
     Route: 042
     Dates: start: 20100924
  9. RITUXIMAB [Suspect]
     Route: 048
     Dates: start: 20101202
  10. CYCLOPHOSPHAMIDE [Suspect]
     Route: 042
     Dates: start: 20101202
  11. NEUPOGEN [Suspect]
     Indication: DIFFUSE LARGE B-CELL LYMPHOMA
     Route: 058
     Dates: start: 20100925
  12. VINBLASTINE SULFATE [Suspect]
     Route: 042
     Dates: start: 20110120

REACTIONS (1)
  - TONSILLITIS [None]
